FAERS Safety Report 17170481 (Version 1)
Quarter: 2019Q4

REPORT INFORMATION
  Report Type: Spontaneous
  Country: US (occurrence: US)
  Receive Date: 20191218
  Receipt Date: 20191218
  Transmission Date: 20200122
  Serious: Yes (Death, Other)
  Sender: FDA-Public Use
  Company Number: US-BAYER-2019-227577

PATIENT

DRUGS (1)
  1. CIPROFLOXACIN. [Suspect]
     Active Substance: CIPROFLOXACIN
     Dosage: UNK
     Dates: start: 201510

REACTIONS (8)
  - Burning sensation [None]
  - Hypoaesthesia [None]
  - Asthenia [None]
  - Pain [None]
  - Sensory loss [None]
  - Neuropathy peripheral [None]
  - Paraesthesia [None]
  - Death [Fatal]

NARRATIVE: CASE EVENT DATE: 20160815
